FAERS Safety Report 17928578 (Version 3)
Quarter: 2020Q3

REPORT INFORMATION
  Report Type: Spontaneous
  Country: ES (occurrence: ES)
  Receive Date: 20200623
  Receipt Date: 20200714
  Transmission Date: 20201103
  Serious: Yes (Hospitalization)
  Sender: FDA-Public Use
  Company Number: ES-TEVA-2020-ES-1789351

PATIENT
  Age: 60 Year
  Sex: Female

DRUGS (1)
  1. BOSENTAN (2882A) [Suspect]
     Active Substance: BOSENTAN
     Indication: PRODUCT USED FOR UNKNOWN INDICATION
     Route: 048
     Dates: start: 20191205

REACTIONS (1)
  - Hepatitis acute [Recovered/Resolved]

NARRATIVE: CASE EVENT DATE: 20200219
